FAERS Safety Report 13178423 (Version 1)
Quarter: 2017Q1

REPORT INFORMATION
  Report Type: Spontaneous
  Country: FR (occurrence: FR)
  Receive Date: 20170202
  Receipt Date: 20170202
  Transmission Date: 20170428
  Serious: Yes (Hospitalization)
  Sender: FDA-Public Use
  Company Number: FR-ASTRAZENECA-2017SE11603

PATIENT
  Age: 916 Month
  Sex: Female

DRUGS (8)
  1. FUROSEMIDE. [Concomitant]
     Active Substance: FUROSEMIDE
  2. BISOPROLOL [Concomitant]
     Active Substance: BISOPROLOL
  3. ZOLPIDEM [Concomitant]
     Active Substance: ZOLPIDEM\ZOLPIDEM TARTRATE
  4. ATORVASTATINE [Concomitant]
     Active Substance: ATORVASTATIN
  5. PLAVIX [Concomitant]
     Active Substance: CLOPIDOGREL BISULFATE
     Indication: ILL-DEFINED DISORDER
     Dosage: 75.0MG UNKNOWN
     Dates: start: 20141018
  6. PARACETAMOL [Concomitant]
     Active Substance: ACETAMINOPHEN
  7. INEXIUM [Suspect]
     Active Substance: ESOMEPRAZOLE
     Route: 048
     Dates: end: 201501
  8. PREVISCAN [Suspect]
     Active Substance: FLUINDIONE
     Indication: ILL-DEFINED DISORDER
     Route: 048
     Dates: start: 20141018, end: 201501

REACTIONS (2)
  - Hypersensitivity [Recovering/Resolving]
  - Tubulointerstitial nephritis [Recovering/Resolving]

NARRATIVE: CASE EVENT DATE: 201412
